FAERS Safety Report 7340929-8 (Version None)
Quarter: 2011Q1

REPORT INFORMATION
  Report Type: 
  Country: None (occurrence: None)
  Receive Date: 20110309
  Receipt Date: 20100804
  Transmission Date: 20110831
  Serious: No
  Sender: FDA-Public Use
  Company Number: US-ABBOTT-10P-163-0661589-00

PATIENT
  Age: 39 Year
  Sex: Female

DRUGS (1)
  1. LUPRON [Suspect]
     Indication: ENDOMETRIOSIS
     Dates: start: 20100701

REACTIONS (3)
  - HOT FLUSH [None]
  - HEADACHE [None]
  - MOOD SWINGS [None]
